FAERS Safety Report 4214767 (Version 1)
Quarter: 2020Q3

REPORT INFORMATION
  Report Type: Spontaneous
  Country: CH (occurrence: CH)
  Receive Date: 20040924
  Receipt Date: 20040924
  Transmission Date: 20201104
  Serious: Yes (Hospitalization)
  Sender: FDA-Public Use
  Company Number: 379655

PATIENT
  Age: 76 Year
  Sex: Male

DRUGS (6)
  1. FERROUS SULFATE. [Suspect]
     Active Substance: FERROUS SULFATE
     Route: 048
     Dates: start: 20040502, end: 20040616
  2. XATRAL [Concomitant]
     Active Substance: ALFUZOSIN
  3. NITRODERM [Suspect]
     Active Substance: NITROGLYCERIN
     Route: 062
     Dates: start: 20040502, end: 20040616
  4. SINTROM [Concomitant]
     Active Substance: ACENOCOUMAROL
  5. TOREM [Concomitant]
     Active Substance: TORSEMIDE
  6. DILATREND [Suspect]
     Active Substance: CARVEDILOL
     Dosage: 50MG PER DAY
     Route: 048
     Dates: start: 20040502, end: 20040616

REACTIONS (7)
  - Purpura [Recovered/Resolved]
  - Dyspnoea [Recovered/Resolved]
  - Rash macular [Recovered/Resolved]
  - Orthopnoea [Recovered/Resolved]
  - Rash pruritic [Recovered/Resolved]
  - Rales [Unknown]
  - Toxic skin eruption [Unknown]

NARRATIVE: CASE EVENT DATE: 20040613
